FAERS Safety Report 10263876 (Version 1)
Quarter: 2014Q2

REPORT INFORMATION
  Report Type: Other
  Country: GB (occurrence: GB)
  Receive Date: 20140627
  Receipt Date: 20140627
  Transmission Date: 20141212
  Serious: Yes (Other)
  Sender: FDA-Public Use
  Company Number: GB-LUPIN PHARMACEUTICALS INC.-E2B_00000965

PATIENT
  Age: 62 Year
  Sex: Female

DRUGS (3)
  1. SIMVASTATIN [Suspect]
     Indication: BLOOD CHOLESTEROL INCREASED
     Route: 048
     Dates: start: 20080709, end: 20121219
  2. SIMVASTATIN [Suspect]
     Route: 048
     Dates: start: 20130327
  3. PERFECTIL [Concomitant]
     Indication: HAIR GROWTH ABNORMAL
     Route: 065
     Dates: start: 201209, end: 201211

REACTIONS (2)
  - Alopecia totalis [Recovering/Resolving]
  - Alopecia areata [Recovering/Resolving]
